FAERS Safety Report 14678973 (Version 2)
Quarter: 2018Q2

REPORT INFORMATION
  Report Type: Spontaneous
  Country: SI (occurrence: SI)
  Receive Date: 20180326
  Receipt Date: 20180412
  Transmission Date: 20180711
  Serious: Yes (Hospitalization)
  Sender: FDA-Public Use
  Company Number: PHHY2018SI049611

PATIENT
  Age: 40 Year
  Sex: Male

DRUGS (1)
  1. AZITHROMYCIN ANHYDROUS. [Suspect]
     Active Substance: AZITHROMYCIN ANHYDROUS
     Indication: PRODUCT USED FOR UNKNOWN INDICATION
     Dosage: 1 DF, QD (FOR 6 DAYS)
     Route: 065

REACTIONS (5)
  - Pneumonia staphylococcal [Unknown]
  - Respiratory rate increased [Unknown]
  - Fatigue [Unknown]
  - Dehydration [Unknown]
  - Heart rate increased [Unknown]
